FAERS Safety Report 7568482-4 (Version None)
Quarter: 2011Q2

REPORT INFORMATION
  Report Type: 
  Country: None (occurrence: None)
  Receive Date: 20110617
  Receipt Date: 20110607
  Transmission Date: 20111010
  Serious: Yes (Other)
  Sender: FDA-Public Use
  Company Number: FK201101160

PATIENT
  Age: 60 Year
  Sex: Female

DRUGS (3)
  1. LEUCOVORIN CALCIUM [Suspect]
     Indication: ADENOCARCINOMA
  2. CISPLATIN [Suspect]
     Indication: ADENOCARCINOMA
     Dosage: 100 MG/M2, INTRAVENOUS
     Route: 042
  3. FLUOROURACIL [Suspect]
     Indication: ADENOCARCINOMA

REACTIONS (1)
  - AORTIC THROMBOSIS [None]
